FAERS Safety Report 6182268-7 (Version None)
Quarter: 2009Q2

REPORT INFORMATION
  Report Type: 
  Country: None (occurrence: None)
  Receive Date: 20090505
  Receipt Date: 20090505
  Transmission Date: 20091009
  Serious: Yes (Other)
  Sender: FDA-Public Use
  Company Number: None

PATIENT
  Age: 30 Year
  Sex: Female
  Weight: 70.7611 kg

DRUGS (1)
  1. MIRENA [Suspect]

REACTIONS (9)
  - ALOPECIA [None]
  - BLINDNESS [None]
  - FATIGUE [None]
  - HAEMORRHAGE [None]
  - MEMORY IMPAIRMENT [None]
  - METRORRHAGIA [None]
  - OEDEMA PERIPHERAL [None]
  - PREMENSTRUAL SYNDROME [None]
  - WEIGHT INCREASED [None]
